FAERS Safety Report 17546389 (Version 1)
Quarter: 2020Q1

REPORT INFORMATION
  Report Type: Spontaneous
  Country: US (occurrence: US)
  Receive Date: 20200316
  Receipt Date: 20200316
  Transmission Date: 20200409
  Serious: Yes (Other)
  Sender: FDA-Public Use
  Company Number: None

PATIENT
  Age: 6 Month
  Sex: Male
  Weight: 5.67 kg

DRUGS (1)
  1. SYNAGIS [Suspect]
     Active Substance: PALIVIZUMAB
     Indication: RESPIRATORY SYNCYTIAL VIRUS INFECTION
     Dosage: ?          OTHER FREQUENCY:28 DAYS;?
     Route: 030
     Dates: start: 20191203

REACTIONS (4)
  - Erythema [None]
  - Limb discomfort [None]
  - Skin disorder [None]
  - Skin exfoliation [None]

NARRATIVE: CASE EVENT DATE: 20200316
